FAERS Safety Report 7138883-7 (Version None)
Quarter: 2010Q4

REPORT INFORMATION
  Report Type: 
  Country: None (occurrence: None)
  Receive Date: 20101206
  Receipt Date: 20101130
  Transmission Date: 20110411
  Serious: Yes (Hospitalization)
  Sender: FDA-Public Use
  Company Number: US-BRISTOL-MYERS SQUIBB COMPANY-15302755

PATIENT
  Age: 66 Year
  Sex: Male
  Weight: 83 kg

DRUGS (10)
  1. CARBOPLATIN [Suspect]
     Indication: NON-SMALL CELL LUNG CANCER
     Dosage: 1DF=6AUC EVERY 21 DAYS LAST DOSE:5AUG10
     Route: 042
     Dates: start: 20100603, end: 20100805
  2. PEMETREXED DISODIUM [Suspect]
     Indication: NON-SMALL CELL LUNG CANCER
     Dosage: PEMETREXED DISODIUM VIAL MAINTENANCE THERAPY STARTED ON 26AUG10
     Route: 042
     Dates: start: 20100603
  3. FOLIC ACID [Concomitant]
     Dates: start: 20100519
  4. VITAMIN B-12 [Concomitant]
     Dates: start: 20100519
  5. OXYCONTIN [Concomitant]
     Indication: PAIN
     Dates: start: 20100519
  6. PROMETHAZINE [Concomitant]
     Indication: VOMITING
     Dosage: FORM:TABS
     Dates: start: 20100528
  7. ZOFRAN [Concomitant]
     Indication: VOMITING
     Dates: start: 20100830
  8. LISINOPRIL [Concomitant]
     Indication: HYPERTENSION
     Dates: start: 20100624
  9. VITAMIN D [Concomitant]
     Indication: PROPHYLAXIS
     Dates: start: 20100510
  10. LOVAZA [Concomitant]
     Indication: PROPHYLAXIS
     Dates: start: 20100510

REACTIONS (1)
  - ANAEMIA [None]
